FAERS Safety Report 5989757-6 (Version None)
Quarter: 2008Q4

REPORT INFORMATION
  Report Type: 
  Country: None (occurrence: None)
  Receive Date: 20081209
  Receipt Date: 20081209
  Transmission Date: 20090506
  Serious: Yes (Hospitalization)
  Sender: FDA-Public Use
  Company Number: ADE2008-0399

PATIENT
  Age: 79 Year
  Sex: Female

DRUGS (4)
  1. BISOPROLOL [Suspect]
     Indication: CARDIOVASCULAR EVENT PROPHYLAXIS
  2. ASPIRN [Concomitant]
  3. CLOPIDOGREL [Concomitant]
  4. TIABENDAZOLE [Concomitant]

REACTIONS (7)
  - DRUG ERUPTION [None]
  - INFLAMMATION [None]
  - PYREXIA [None]
  - RASH PUSTULAR [None]
  - SKIN EXFOLIATION [None]
  - SKIN OEDEMA [None]
  - SKIN ULCER [None]
